FAERS Safety Report 22365293 (Version 1)
Quarter: 2023Q2

REPORT INFORMATION
  Report Type: Spontaneous
  Country: US (occurrence: US)
  Receive Date: 20230525
  Receipt Date: 20230525
  Transmission Date: 20230721
  Serious: Yes (Other)
  Sender: FDA-Public Use
  Company Number: US-JNJFOC-20230537695

PATIENT

DRUGS (2)
  1. IMBRUVICA [Suspect]
     Active Substance: IBRUTINIB
     Indication: Chronic lymphocytic leukaemia
     Route: 048
  2. ACALABRUTINIB [Suspect]
     Active Substance: ACALABRUTINIB
     Indication: Lymphocytic leukaemia
     Route: 065

REACTIONS (18)
  - Cytopenia [Unknown]
  - Arthritis [Unknown]
  - Hypertension [Unknown]
  - Fatigue [Unknown]
  - Rash [Unknown]
  - Drug ineffective [Unknown]
  - Infection [Unknown]
  - Pulmonary toxicity [Unknown]
  - Headache [Unknown]
  - Oedema [Unknown]
  - Atrial fibrillation [Unknown]
  - Diarrhoea [Unknown]
  - Cardiotoxicity [Unknown]
  - Arthralgia [Unknown]
  - Haemorrhage [Unknown]
  - Myalgia [Unknown]
  - Gastrointestinal toxicity [Unknown]
  - Pneumonitis [Unknown]
